FAERS Safety Report 4744407-1 (Version None)
Quarter: 2005Q3

REPORT INFORMATION
  Report Type: 
  Country: None (occurrence: None)
  Receive Date: 20050809
  Receipt Date: 20050801
  Transmission Date: 20060218
  Serious: Yes (Disabling, Other)
  Sender: FDA-Public Use
  Company Number: 2005109544

PATIENT
  Sex: Male
  Weight: 72.5755 kg

DRUGS (17)
  1. VFEND [Suspect]
     Indication: BRONCHOPULMONARY ASPERGILLOSIS
     Dates: start: 20041001, end: 20050101
  2. ACCOLATE [Concomitant]
  3. ATIVAN [Concomitant]
  4. ATROVENT [Concomitant]
  5. BRETHINE [Concomitant]
  6. CELEXA [Concomitant]
  7. MEDROL [Concomitant]
  8. MIACALCIN [Concomitant]
  9. MUCINEX (GUAIFENESIN) [Concomitant]
  10. NEXIUM [Concomitant]
  11. OSCAL 500-D (CALCIUM, COLECALCIFEROL) [Concomitant]
  12. PULMICORT [Concomitant]
  13. THEOPHYLLINE [Concomitant]
  14. VENTOLIN [Concomitant]
  15. DEMADEX [Concomitant]
  16. DARVOCET-N 100 [Concomitant]
  17. ANTIBIOTICS (ANTIBIOTICS) [Concomitant]

REACTIONS (9)
  - ALOPECIA [None]
  - BLOOD PRESSURE INCREASED [None]
  - NEUROPATHY [None]
  - OEDEMA PERIPHERAL [None]
  - PHOTOSENSITIVITY REACTION [None]
  - PROCEDURAL COMPLICATION [None]
  - TACHYCARDIA [None]
  - WEIGHT DECREASED [None]
  - WHEELCHAIR USER [None]
